FAERS Safety Report 6930200-8 (Version None)
Quarter: 2010Q3

REPORT INFORMATION
  Report Type: 
  Country: None (occurrence: None)
  Receive Date: 20100817
  Receipt Date: 20100817
  Transmission Date: 20110219
  Serious: Yes (Other)
  Sender: FDA-Public Use
  Company Number: None

PATIENT
  Age: 21 Month
  Sex: Male
  Weight: 12.7007 kg

DRUGS (1)
  1. AMOXICILLIN [Suspect]
     Indication: EAR INFECTION
     Dosage: 1 1/4 TSP. (6.25ML) EVERY 8 HRS. BY MOUTH
     Route: 048
     Dates: start: 20100528, end: 20100603

REACTIONS (1)
  - TOOTH DISCOLOURATION [None]
